FAERS Safety Report 7175392-3 (Version None)
Quarter: 2010Q4

REPORT INFORMATION
  Report Type: 
  Country: None (occurrence: None)
  Receive Date: 20101220
  Receipt Date: 20100311
  Transmission Date: 20110411
  Serious: No
  Sender: FDA-Public Use
  Company Number: US-AMGEN-TCS399211

PATIENT

DRUGS (2)
  1. ENBREL [Suspect]
     Indication: PSORIATIC ARTHROPATHY
     Dosage: 50 MG, QWK
     Route: 058
     Dates: start: 20081205
  2. ENBREL [Suspect]
     Indication: PSORIASIS

REACTIONS (8)
  - BURSITIS [None]
  - DYSPNOEA [None]
  - ERYTHEMA [None]
  - FLUID RETENTION [None]
  - OEDEMA PERIPHERAL [None]
  - PAIN IN EXTREMITY [None]
  - PRURITUS [None]
  - SCIATICA [None]
